FAERS Safety Report 8964969 (Version 1)
Quarter: 2012Q4

REPORT INFORMATION
  Report Type: 
  Country: IT (occurrence: IT)
  Receive Date: 20121214
  Receipt Date: 20121214
  Transmission Date: 20130627
  Serious: Yes (Other)
  Sender: FDA-Public Use
  Company Number: IT-ROCHE-1168216

PATIENT
  Age: 38 Year
  Sex: Male

DRUGS (5)
  1. AVASTIN [Suspect]
     Indication: COLON CANCER
     Route: 042
     Dates: start: 20121210, end: 20121210
  2. OXALIPLATIN [Suspect]
     Indication: COLON CANCER
     Route: 042
     Dates: start: 20121210, end: 20121210
  3. FLUOROURACILE [Suspect]
     Indication: COLON CANCER
     Route: 042
     Dates: start: 20121210
  4. FLUOROURACILE [Suspect]
     Route: 042
     Dates: start: 20121210, end: 20121211
  5. SOLDESAM [Concomitant]
     Indication: COLON CANCER
     Route: 042
     Dates: start: 20121210, end: 20121210

REACTIONS (1)
  - Anaemia [Unknown]
